FAERS Safety Report 9358684 (Version 1)
Quarter: 2013Q2

REPORT INFORMATION
  Report Type: Spontaneous
  Country: FR (occurrence: FR)
  Receive Date: 20130620
  Receipt Date: 20130620
  Transmission Date: 20140414
  Serious: Yes (Hospitalization)
  Sender: FDA-Public Use
  Company Number: FR-GLAXOSMITHKLINE-B0899375A

PATIENT
  Age: 50 Year
  Sex: Male

DRUGS (5)
  1. REQUIP LP [Suspect]
     Indication: PARKINSON^S DISEASE
     Dosage: 24MG PER DAY
     Route: 048
     Dates: start: 200903
  2. REQUIP [Concomitant]
     Indication: PARKINSON^S DISEASE
     Route: 048
     Dates: start: 2004, end: 200903
  3. MODOPAR [Concomitant]
     Indication: PARKINSON^S DISEASE
     Route: 065
     Dates: start: 2005
  4. COMTAN [Concomitant]
     Indication: PARKINSON^S DISEASE
     Route: 065
  5. SELEGILINE [Concomitant]
     Indication: PARKINSON^S DISEASE
     Route: 065

REACTIONS (2)
  - Hypersexuality [Recovered/Resolved]
  - Eating disorder [Recovering/Resolving]
